FAERS Safety Report 14985424 (Version 1)
Quarter: 2018Q2

REPORT INFORMATION
  Report Type: Spontaneous
  Country: US (occurrence: US)
  Receive Date: 20180516
  Receipt Date: 20180516
  Transmission Date: 20180711
  Serious: Yes (Hospitalization)
  Sender: FDA-Public Use
  Company Number: None

PATIENT
  Age: 45 Year
  Sex: Male
  Weight: 159.21 kg

DRUGS (6)
  1. BOSULIF [Suspect]
     Active Substance: BOSUTINIB MONOHYDRATE
     Indication: CHRONIC MYELOID LEUKAEMIA
     Dosage: 400 MG 4D/WEEK PO
     Route: 048
     Dates: start: 20170925
  2. ALLOPURINOL. [Concomitant]
     Active Substance: ALLOPURINOL
  3. COUMADIN [Concomitant]
     Active Substance: WARFARIN SODIUM
  4. XARELTO [Concomitant]
     Active Substance: RIVAROXABAN
  5. DURAGESIC [Concomitant]
     Active Substance: FENTANYL
  6. AMBIEN [Concomitant]
     Active Substance: ZOLPIDEM TARTRATE

REACTIONS (1)
  - Hospitalisation [None]
